FAERS Safety Report 18233721 (Version 4)
Quarter: 2020Q3

REPORT INFORMATION
  Report Type: Spontaneous
  Country: US (occurrence: US)
  Receive Date: 20200904
  Receipt Date: 20200928
  Transmission Date: 20201103
  Serious: Yes (Other)
  Sender: FDA-Public Use
  Company Number: US-ASTRAZENECA-2020SF11228

PATIENT
  Age: 62 Year
  Sex: Male
  Weight: 150.6 kg

DRUGS (10)
  1. BRILINTA [Suspect]
     Active Substance: TICAGRELOR
     Indication: STENT PLACEMENT
     Route: 048
     Dates: start: 20190621, end: 20200630
  2. BRILINTA [Suspect]
     Active Substance: TICAGRELOR
     Indication: STENT PLACEMENT
     Dosage: 60.0MG UNKNOWN
     Route: 048
     Dates: start: 20200901
  3. HCTZ [Concomitant]
     Active Substance: HYDROCHLOROTHIAZIDE
     Dosage: 15 MG, MORNING
  4. BRILINTA [Suspect]
     Active Substance: TICAGRELOR
     Indication: STENT PLACEMENT
     Dosage: NOT DOING THE MORNING TABLET LAST 7 DAYS
     Route: 048
     Dates: start: 20200701, end: 20200725
  5. ATENOLOL. [Suspect]
     Active Substance: ATENOLOL
     Route: 048
  6. ASPIRIN. [Concomitant]
     Active Substance: ASPIRIN
     Dosage: 81 MG IN THE MORNING
  7. ISOSORB DIN [Concomitant]
     Dosage: 1/2 ISOSORB DIN 5MG
  8. HCTZ [Concomitant]
     Active Substance: HYDROCHLOROTHIAZIDE
  9. BRILINTA [Suspect]
     Active Substance: TICAGRELOR
     Indication: STENT PLACEMENT
     Route: 048
     Dates: start: 202006
  10. ZETIA EQUIVALENT [Concomitant]
     Dates: start: 201908

REACTIONS (17)
  - Oedema peripheral [Not Recovered/Not Resolved]
  - Product use issue [Unknown]
  - Coronary artery occlusion [Unknown]
  - Feeling abnormal [Unknown]
  - Pain [Unknown]
  - Haemoptysis [Unknown]
  - Intentional dose omission [Unknown]
  - Asthma [Unknown]
  - Arthropod sting [Unknown]
  - Pneumonia [Unknown]
  - Heart rate decreased [Unknown]
  - Dyspnoea [Unknown]
  - Intentional product misuse [Unknown]
  - Sinus disorder [Recovered/Resolved]
  - Tetanus [Unknown]
  - Pyrexia [Unknown]
  - Palpitations [Unknown]
